FAERS Safety Report 5750153-8 (Version None)
Quarter: 2008Q2

REPORT INFORMATION
  Report Type: 
  Country: None (occurrence: None)
  Receive Date: 20080522
  Receipt Date: 20080522
  Transmission Date: 20081010
  Serious: Yes (Life-Threatening)
  Sender: FDA-Public Use
  Company Number: None

PATIENT
  Age: 26 Year
  Sex: Female
  Weight: 56.6996 kg

DRUGS (3)
  1. LEVAQUIN [Suspect]
     Indication: PHARYNGITIS
     Dosage: 750MG  1 PER DAY PO
     Route: 048
     Dates: start: 20080518, end: 20080520
  2. ACETAMINOPHEN [Concomitant]
  3. ASPIRIN [Concomitant]

REACTIONS (15)
  - ARTHRALGIA [None]
  - BODY TEMPERATURE INCREASED [None]
  - DYSPNOEA [None]
  - GASTRIC DISORDER [None]
  - HEADACHE [None]
  - HYPERACUSIS [None]
  - HYPERSENSITIVITY [None]
  - INSOMNIA [None]
  - JOINT SWELLING [None]
  - MALAISE [None]
  - PALPITATIONS [None]
  - PHARYNGEAL OEDEMA [None]
  - PHOTOPHOBIA [None]
  - SELF-MEDICATION [None]
  - WHEEZING [None]
